FAERS Safety Report 9691004 (Version 1)
Quarter: 2013Q4

REPORT INFORMATION
  Report Type: Spontaneous
  Country: US (occurrence: None)
  Receive Date: 20131114
  Receipt Date: 20131114
  Transmission Date: 20140711
  Serious: Yes (Death)
  Sender: FDA-Public Use
  Company Number: None

PATIENT
  Age: 67 Year
  Sex: Female
  Weight: 74 kg

DRUGS (1)
  1. RIVAROXABAN [Suspect]
     Indication: PULMONARY EMBOLISM
     Dosage: 1 DOSE

REACTIONS (5)
  - Haematemesis [None]
  - Brain stem haemorrhage [None]
  - General physical health deterioration [None]
  - Brain death [None]
  - Subdural haematoma [None]
